FAERS Safety Report 25724243 (Version 1)
Quarter: 2025Q3

REPORT INFORMATION
  Report Type: Spontaneous
  Country: JP (occurrence: JP)
  Receive Date: 20250826
  Receipt Date: 20250826
  Transmission Date: 20251021
  Serious: Yes (Other)
  Sender: ACCORD
  Company Number: JP-MLMSERVICE-20250807-PI606083-00255-1

PATIENT
  Age: 69 Year
  Sex: Male

DRUGS (6)
  1. PACLITAXEL [Suspect]
     Active Substance: PACLITAXEL
     Indication: Tongue cancer recurrent
  2. CETUXIMAB [Concomitant]
     Active Substance: CETUXIMAB
     Indication: Tongue cancer recurrent
  3. CETUXIMAB [Concomitant]
     Active Substance: CETUXIMAB
     Indication: Metastases to lung
  4. PACLITAXEL [Suspect]
     Active Substance: PACLITAXEL
     Indication: Neoplasm progression
  5. CETUXIMAB [Concomitant]
     Active Substance: CETUXIMAB
     Indication: Neoplasm progression
  6. PACLITAXEL [Suspect]
     Active Substance: PACLITAXEL
     Indication: Metastases to lung

REACTIONS (1)
  - Retinopathy [Unknown]
